FAERS Safety Report 6795383-1 (Version None)
Quarter: 2010Q2

REPORT INFORMATION
  Report Type: 
  Country: None (occurrence: None)
  Receive Date: 20100625
  Receipt Date: 20100618
  Transmission Date: 20101027
  Serious: Yes (Other)
  Sender: FDA-Public Use
  Company Number: US-JNJFOC-20100606482

PATIENT
  Sex: Male
  Weight: 79.83 kg

DRUGS (8)
  1. DURAGESIC-100 [Suspect]
     Indication: BACK PAIN
     Dosage: 2 PATCHES OF 25 UG/HR
     Route: 062
  2. DURAGESIC-100 [Suspect]
     Route: 062
  3. DURAGESIC-100 [Suspect]
     Dosage: 25 UG/HR 2 PATCHES
     Route: 062
  4. DURAGESIC-100 [Suspect]
     Dosage: 25 UG/HR 2 PATCHES
     Route: 062
  5. DURAGESIC-100 [Suspect]
     Dosage: 25 UG/HR 3 PATCHES
     Route: 062
  6. FENTANYL-100 [Suspect]
     Indication: BACK PAIN
     Dosage: 25 UG/HR IN 48 HOURS
     Route: 062
  7. DURAGESIC-100 [Suspect]
     Route: 062
  8. UNKNOWN MEDICATION [Concomitant]

REACTIONS (5)
  - BLOOD CHOLESTEROL INCREASED [None]
  - DRUG INEFFECTIVE [None]
  - MUSCULOSKELETAL PAIN [None]
  - SOMNOLENCE [None]
  - WEIGHT DECREASED [None]
